FAERS Safety Report 4802452-1 (Version None)
Quarter: 2005Q4

REPORT INFORMATION
  Report Type: 
  Country: None (occurrence: None)
  Receive Date: 20051014
  Receipt Date: 20041120
  Transmission Date: 20060501
  Serious: Yes (Other)
  Sender: FDA-Public Use
  Company Number: 2004088844

PATIENT
  Age: 69 Year
  Sex: Female

DRUGS (7)
  1. NEURONTIN [Suspect]
     Indication: PAIN
  2. TOPIRAMATE [Suspect]
     Indication: CONVULSION
  3. VERAPAMIL [Suspect]
     Indication: ILL-DEFINED DISORDER
  4. CONJUGATED ESTROGENS [Suspect]
     Indication: ILL-DEFINED DISORDER
  5. CLONAZEPAM [Suspect]
     Indication: ILL-DEFINED DISORDER
  6. FLUVASTATIN [Suspect]
     Indication: ILL-DEFINED DISORDER
  7. ALL OTHER THERAPEUTIC PRODUCTS [Concomitant]

REACTIONS (5)
  - CONVULSION [None]
  - HEADACHE [None]
  - NAUSEA [None]
  - OSTEOARTHRITIS [None]
  - SCIATICA [None]
